FAERS Safety Report 8773424 (Version 2)
Quarter: 2012Q4

REPORT INFORMATION
  Report Type: 
  Country: MX (occurrence: US)
  Receive Date: 20120907
  Receipt Date: 20120928
  Transmission Date: 20130627
  Serious: Yes (Hospitalization, Disabling, Other)
  Sender: FDA-Public Use
  Company Number: US-009507513-1201USA00812

PATIENT

DRUGS (12)
  1. FOSAMAX [Suspect]
     Indication: OSTEOPOROSIS
     Dosage: 70 mg, qw
     Route: 048
     Dates: start: 200802
  2. BONIVA [Suspect]
  3. ALENDRONATE SODIUM [Suspect]
     Indication: OSTEOPOROSIS
     Dosage: 70 mg, qw
     Route: 048
     Dates: start: 20080324, end: 20091215
  4. CALCIUM (UNSPECIFIED) [Concomitant]
     Dosage: UNK, qd
     Route: 048
     Dates: start: 1988
  5. VITAMIN D (UNSPECIFIED) [Concomitant]
     Dosage: UNK UNK, qd
     Route: 048
     Dates: start: 2001
  6. MELATONIN [Concomitant]
     Dosage: UNK, qd
     Route: 048
     Dates: start: 2001
  7. PRILOSEC [Concomitant]
     Dosage: 20 mg, qd
  8. SOMINEX (DIPHENHYDRAMINE HYDROCHLORIDE) [Concomitant]
     Indication: HYPERSENSITIVITY
  9. PROTONIX [Concomitant]
     Indication: GASTROOESOPHAGEAL REFLUX DISEASE
     Dosage: 40 mg, qd
  10. NORVASC [Concomitant]
     Indication: HYPERTENSION
     Dosage: 10 mg, qd
  11. INSULIN [Concomitant]
     Indication: TYPE 2 DIABETES MELLITUS
     Dosage: UNK UNK,
  12. FOSAMAX [Suspect]

REACTIONS (43)
  - Femur fracture [Unknown]
  - Hip arthroplasty [Unknown]
  - Intramedullary rod insertion [Unknown]
  - Osteonecrosis [Unknown]
  - Intestinal obstruction [Unknown]
  - Spinal compression fracture [Unknown]
  - Arthritis [Unknown]
  - Fall [Unknown]
  - Bone fragmentation [Unknown]
  - Bursitis [Unknown]
  - Dyspnoea [Recovered/Resolved]
  - Pleural effusion [Unknown]
  - Cardiac disorder [Unknown]
  - Lymphadenopathy mediastinal [Unknown]
  - Pulmonary oedema [Unknown]
  - Pneumonia [Unknown]
  - Hypoxia [Recovered/Resolved]
  - Hiatus hernia [Unknown]
  - Blood cortisol increased [Unknown]
  - Thyroid disorder [Unknown]
  - Fatigue [Unknown]
  - Hyperlipidaemia [Unknown]
  - Aortic stenosis [Unknown]
  - Contusion [Unknown]
  - Spinal disorder [Unknown]
  - Weight increased [Unknown]
  - Kyphosis [Unknown]
  - Dental caries [Unknown]
  - Dental caries [Unknown]
  - Blood pressure increased [Unknown]
  - Escherichia urinary tract infection [Unknown]
  - Klebsiella infection [Unknown]
  - Tongue coated [Unknown]
  - Decubitus ulcer [Unknown]
  - Dyslipidaemia [Unknown]
  - Snoring [Unknown]
  - Haemorrhagic anaemia [Unknown]
  - Gait disturbance [Unknown]
  - Impaired self-care [Unknown]
  - Ecchymosis [Unknown]
  - Haematoma [Unknown]
  - Diarrhoea [Unknown]
  - Aphthous stomatitis [Unknown]
